FAERS Safety Report 10192460 (Version 1)
Quarter: 2014Q2

REPORT INFORMATION
  Report Type: Spontaneous
  Country: JP (occurrence: JP)
  Receive Date: 20140523
  Receipt Date: 20140523
  Transmission Date: 20141212
  Serious: Yes (Other)
  Sender: FDA-Public Use
  Company Number: JP-ACTAVIS-2014-11005

PATIENT
  Age: 94 Year
  Sex: Female

DRUGS (2)
  1. FLUVOXAMINE (UNKNOWN) [Suspect]
     Indication: ANXIETY
     Dosage: 25 MG, QPM
     Route: 065
  2. CELECOXIB (UNKNOWN) [Interacting]
     Indication: JOINT SWELLING
     Dosage: UNKNOWN
     Route: 065

REACTIONS (4)
  - Delirium [Recovering/Resolving]
  - Drug interaction [Unknown]
  - Restlessness [None]
  - Irritability [None]
